FAERS Safety Report 4694045-4 (Version None)
Quarter: 2005Q2

REPORT INFORMATION
  Report Type: 
  Country: None (occurrence: None)
  Receive Date: 20050616
  Receipt Date: 20050603
  Transmission Date: 20051028
  Serious: Yes (Hospitalization, Other)
  Sender: FDA-Public Use
  Company Number: 2005066625

PATIENT
  Age: 57 Year
  Sex: Female
  Weight: 63.5036 kg

DRUGS (20)
  1. CELEBREX [Suspect]
     Indication: FIBROMYALGIA
     Dosage: 200 MG, ORAL
     Route: 048
     Dates: start: 20030922, end: 20040919
  2. CELEBREX [Suspect]
     Indication: PAIN
     Dosage: 200 MG, ORAL
     Route: 048
     Dates: start: 20030922, end: 20040919
  3. ACTOS [Concomitant]
  4. LISINOPRIL [Concomitant]
  5. MEGACE [Concomitant]
  6. NEXIUM [Concomitant]
  7. KLONOPIN [Concomitant]
  8. QUININE SULFATE [Concomitant]
  9. ZETIA [Concomitant]
  10. COLOSTRUM (COLOSTRUM) [Concomitant]
  11. ZOLOFT [Concomitant]
  12. ADVAIR DISKUS (FLUTICASONE PROPIONATE, SALMETEROL XINAFOATE) [Concomitant]
  13. FLOVENT [Concomitant]
  14. VICODIN [Concomitant]
  15. GLUCOPHAGE [Concomitant]
  16. SYNTHROID [Concomitant]
  17. XANAX [Concomitant]
  18. TEQUIN [Concomitant]
  19. PREDNISONE (PREDNISONE) [Concomitant]
  20. DARVOCET (DEXTROPROPOXYPHENE NAPSILATE, PARACETAMOL) [Concomitant]

REACTIONS (2)
  - PNEUMONIA [None]
  - SUBCLAVIAN ARTERY THROMBOSIS [None]
